FAERS Safety Report 20586681 (Version 1)
Quarter: 2022Q1

REPORT INFORMATION
  Report Type: Report from Study
  Country: US (occurrence: US)
  Receive Date: 20220313
  Receipt Date: 20220313
  Transmission Date: 20220423
  Serious: Yes (Other)
  Sender: FDA-Public Use
  Company Number: US-ABBVIE-22K-163-4310925-00

PATIENT
  Sex: Female

DRUGS (2)
  1. RINVOQ [Suspect]
     Active Substance: UPADACITINIB
     Indication: Rheumatoid arthritis
     Dosage: EXTEND RELEASE TABLET
     Route: 048
     Dates: start: 20220221, end: 2022
  2. RINVOQ [Suspect]
     Active Substance: UPADACITINIB
     Dosage: EXTEND RELEASE TABLET
     Route: 048
     Dates: start: 20220301

REACTIONS (3)
  - Surgery [Unknown]
  - Pain [Unknown]
  - Rheumatoid arthritis [Unknown]

NARRATIVE: CASE EVENT DATE: 20220101
